FAERS Safety Report 5890287-0 (Version None)
Quarter: 2008Q3

REPORT INFORMATION
  Report Type: 
  Country: None (occurrence: None)
  Receive Date: 20080918
  Receipt Date: 20080908
  Transmission Date: 20090109
  Serious: Yes (Disabling)
  Sender: FDA-Public Use
  Company Number: 08H-163-0314879-00

PATIENT
  Sex: Male

DRUGS (1)
  1. MARCAINE AND EPINEPHRINE FOR INJECTIO (MARCAINE (BUPIVACAINE HCL/EPINE [Suspect]
     Indication: ANALGESIA
     Dosage: CONTINUOUS, INJECTION
     Dates: start: 20070301

REACTIONS (1)
  - CHONDROLYSIS [None]
